FAERS Safety Report 24370851 (Version 5)
Quarter: 2025Q1

REPORT INFORMATION
  Report Type: Spontaneous
  Country: JP (occurrence: JP)
  Receive Date: 20240927
  Receipt Date: 20250221
  Transmission Date: 20250408
  Serious: Yes (Hospitalization, Other)
  Sender: BRISTOL-MYERS SQUIBB COMPANY
  Company Number: JP-BRISTOL-MYERS SQUIBB COMPANY-2024-151873

PATIENT
  Age: 67 Year
  Sex: Female
  Weight: 41 kg

DRUGS (2)
  1. SPRYCEL [Suspect]
     Active Substance: DASATINIB
     Indication: Chronic myeloid leukaemia
     Route: 048
     Dates: start: 20231227, end: 20240830
  2. SPRYCEL [Suspect]
     Active Substance: DASATINIB
     Dates: start: 20241021

REACTIONS (3)
  - Liver abscess [Recovered/Resolved]
  - Escherichia infection [Recovered/Resolved]
  - Decreased immune responsiveness [Unknown]

NARRATIVE: CASE EVENT DATE: 20240829
